FAERS Safety Report 20063132 (Version 1)
Quarter: 2021Q4

REPORT INFORMATION
  Report Type: Spontaneous
  Country: FR (occurrence: FR)
  Receive Date: 20211112
  Receipt Date: 20211112
  Transmission Date: 20220303
  Serious: Yes (Hospitalization)
  Sender: FDA-Public Use
  Company Number: FR-ANIPHARMA-2021-FR-000231

PATIENT
  Age: 54 Year
  Sex: Female
  Weight: 75 kg

DRUGS (6)
  1. CANDESARTAN [Suspect]
     Active Substance: CANDESARTAN
     Indication: Hypertension
     Dosage: UNKNOWN DOSE AND FREQUENCY
     Route: 048
  2. COMIRNATY [Suspect]
     Active Substance: TOZINAMERAN
     Dosage: UNKNOWN DOSE AND FREQUENCY
     Route: 030
     Dates: start: 202102, end: 202102
  3. ESOMEPRAZOLE [Concomitant]
     Active Substance: ESOMEPRAZOLE
     Dosage: UNKNOWN DOSE AND FREQUENCY
     Route: 065
  4. MONTELUKAST SODIUM [Concomitant]
     Active Substance: MONTELUKAST SODIUM
     Dosage: UNKNOWN DOSE AND FREQUENCY
     Route: 065
  5. SPIRIVA [Concomitant]
     Active Substance: TIOTROPIUM BROMIDE MONOHYDRATE
     Dosage: UNKNOWN DOSE AND FREQUENCY
     Route: 055
  6. SERETIDE [Concomitant]
     Active Substance: FLUTICASONE PROPIONATE\SALMETEROL XINAFOATE
     Dosage: UNKNOWN DOSE AND FREQUENCY
     Route: 065

REACTIONS (1)
  - Interstitial lung disease [Recovering/Resolving]

NARRATIVE: CASE EVENT DATE: 20210401
